FAERS Safety Report 15208279 (Version 2)
Quarter: 2022Q3

REPORT INFORMATION
  Report Type: Spontaneous
  Country: FR (occurrence: FR)
  Receive Date: 20180727
  Receipt Date: 20220712
  Transmission Date: 20221026
  Serious: Yes (Life-Threatening, Hospitalization, Other)
  Sender: FDA-Public Use
  Company Number: None

PATIENT

DRUGS (11)
  1. VYXEOS [Suspect]
     Active Substance: CYTARABINE\DAUNORUBICIN
     Indication: Acute myeloid leukaemia
     Dosage: 90.2 MILLIGRAM
     Route: 042
     Dates: start: 20180607
  2. PENTACARINAT [Suspect]
     Active Substance: PENTAMIDINE ISETHIONATE
     Indication: Pneumocystis jirovecii infection
     Dosage: 300 MILLIGRAM, QD
     Route: 045
     Dates: start: 20180628, end: 20180628
  3. PENTACARINAT [Suspect]
     Active Substance: PENTAMIDINE ISETHIONATE
     Indication: Fungal disease carrier
  4. BACTRIM [Concomitant]
     Active Substance: SULFAMETHOXAZOLE\TRIMETHOPRIM
     Indication: Pneumocystis jirovecii infection
     Dosage: 6400 UNK, QD
     Route: 042
     Dates: start: 20180625, end: 20180627
  5. CIPROFLOXACIN [Concomitant]
     Active Substance: CIPROFLOXACIN
     Indication: Lung disorder
     Dosage: 800 UNK, QD
     Route: 042
     Dates: start: 20180622, end: 20180628
  6. CILASTATIN SODIUM\IMIPENEM [Concomitant]
     Active Substance: CILASTATIN SODIUM\IMIPENEM
     Indication: Lung disorder
     Dosage: 1500 UNK, QD
     Route: 042
     Dates: start: 20180625
  7. PANTOPRAZOLE [Concomitant]
     Active Substance: PANTOPRAZOLE
     Indication: Product used for unknown indication
     Dosage: 40 UNK, QD
     Route: 048
  8. VFEND [Concomitant]
     Active Substance: VORICONAZOLE
     Indication: Aspergillus infection
     Dosage: 600 UNK, QD
     Route: 048
     Dates: start: 20180625
  9. VALACYCLOVIR HYDROCHLORIDE [Concomitant]
     Active Substance: VALACYCLOVIR HYDROCHLORIDE
     Indication: Prophylaxis
     Dosage: 500 UNK, QD
     Route: 048
  10. LINEZOLID [Concomitant]
     Active Substance: LINEZOLID
     Indication: Lung disorder
     Dosage: 1200 UNK, QD
     Route: 048
  11. LEVOFLOXACIN [Concomitant]
     Active Substance: LEVOFLOXACIN
     Indication: Product used for unknown indication
     Dosage: UNK
     Route: 042
     Dates: start: 20180625

REACTIONS (4)
  - Acute pulmonary oedema [Recovered/Resolved]
  - Coronary artery stenosis [Not Recovered/Not Resolved]
  - Chest pain [Not Recovered/Not Resolved]
  - Left ventricular dysfunction [Not Recovered/Not Resolved]

NARRATIVE: CASE EVENT DATE: 20180601
